FAERS Safety Report 13460113 (Version 1)
Quarter: 2017Q2

REPORT INFORMATION
  Report Type: Spontaneous
  Country: US (occurrence: US)
  Receive Date: 20170420
  Receipt Date: 20170420
  Transmission Date: 20170830
  Serious: No
  Sender: FDA-Public Use
  Company Number: US-BIOGEN-2017BI00389834

PATIENT
  Sex: Female

DRUGS (2)
  1. AVONEX [Suspect]
     Active Substance: INTERFERON BETA-1A
     Indication: MULTIPLE SCLEROSIS
     Route: 065
     Dates: start: 20120424
  2. AVONEX [Suspect]
     Active Substance: INTERFERON BETA-1A
     Route: 065
     Dates: start: 20120424, end: 20140201

REACTIONS (12)
  - Paraesthesia [Unknown]
  - Confusional state [Unknown]
  - Cognitive disorder [Unknown]
  - Hemianaesthesia [Unknown]
  - Heart rate decreased [Unknown]
  - Dizziness [Unknown]
  - Musculoskeletal disorder [Unknown]
  - General symptom [Unknown]
  - Memory impairment [Unknown]
  - Impaired driving ability [Unknown]
  - Abdominal discomfort [Unknown]
  - Multiple sclerosis [Unknown]
